FAERS Safety Report 4395972-8 (Version None)
Quarter: 2004Q3

REPORT INFORMATION
  Report Type: 
  Country: None (occurrence: None)
  Receive Date: 20040707
  Receipt Date: 20040618
  Transmission Date: 20050211
  Serious: Yes (Other)
  Sender: FDA-Public Use
  Company Number: PHNU2004DE02170

PATIENT
  Age: 74 Year
  Sex: Male

DRUGS (1)
  1. VISUDYNE [Suspect]
     Indication: MACULAR DEGENERATION
     Dates: start: 20030401, end: 20030401

REACTIONS (7)
  - CHOROIDAL NEOVASCULARISATION [None]
  - DISEASE PROGRESSION [None]
  - FIBROSIS [None]
  - MACULAR DEGENERATION [None]
  - RETINAL DEGENERATION [None]
  - RETINAL HAEMORRHAGE [None]
  - SCAR [None]
